FAERS Safety Report 4289476-0 (Version None)
Quarter: 2004Q1

REPORT INFORMATION
  Report Type: 
  Country: None (occurrence: None)
  Receive Date: 20040210
  Receipt Date: 20040204
  Transmission Date: 20041129
  Serious: Yes (Hospitalization)
  Sender: FDA-Public Use
  Company Number: 200410490FR

PATIENT
  Age: 22 Year
  Sex: Female

DRUGS (3)
  1. PIRILENE [Suspect]
     Indication: LYMPH NODE TUBERCULOSIS
     Route: 048
     Dates: start: 20030414, end: 20030509
  2. RIFADIN [Suspect]
     Indication: LYMPH NODE TUBERCULOSIS
     Dates: start: 20030414
  3. RIMIFON [Concomitant]
     Indication: LYMPH NODE TUBERCULOSIS
     Dates: start: 20030414

REACTIONS (3)
  - COMPLICATIONS OF MATERNAL EXPOSURE TO THERAPEUTIC DRUGS [None]
  - PREGNANCY [None]
  - PREMATURE RUPTURE OF MEMBRANES [None]
